FAERS Safety Report 10571220 (Version 4)
Quarter: 2014Q4

REPORT INFORMATION
  Report Type: Report from Study
  Country: CH (occurrence: CH)
  Receive Date: 20141107
  Receipt Date: 20141227
  Transmission Date: 20150529
  Serious: Yes (Other)
  Sender: FDA-Public Use
  Company Number: PHHY2014CH139917

PATIENT
  Age: 62 Year
  Sex: Male
  Weight: 63 kg

DRUGS (4)
  1. CLEXA [Concomitant]
     Indication: PULMONARY EMBOLISM
     Dosage: 120 MG, QD
     Route: 065
  2. LDK378 [Suspect]
     Active Substance: CERITINIB
     Indication: NON-SMALL CELL LUNG CANCER
     Dosage: 750 MG, QD
     Route: 048
     Dates: start: 20141007, end: 20141027
  3. LDK378 [Suspect]
     Active Substance: CERITINIB
     Dosage: 300 MG, QD
     Route: 048
     Dates: start: 20141208, end: 20141208
  4. PREDNISOLON [Concomitant]
     Active Substance: PREDNISOLONE
     Indication: METASTASES TO CENTRAL NERVOUS SYSTEM
     Dosage: 20 MG, QD
     Route: 065

REACTIONS (5)
  - Non-small cell lung cancer [Unknown]
  - Blood creatinine increased [Recovering/Resolving]
  - Blood urea increased [Unknown]
  - Prerenal failure [Recovering/Resolving]
  - Malignant neoplasm progression [Unknown]

NARRATIVE: CASE EVENT DATE: 20141020
